FAERS Safety Report 5873257-8 (Version None)
Quarter: 2008Q3

REPORT INFORMATION
  Report Type: 
  Country: None (occurrence: None)
  Receive Date: 20080908
  Receipt Date: 20080826
  Transmission Date: 20090109
  Serious: Yes (Hospitalization)
  Sender: FDA-Public Use
  Company Number: GB-AMGEN-US306003

PATIENT
  Sex: Female
  Weight: 18.2 kg

DRUGS (3)
  1. ENBREL [Suspect]
     Indication: POLYARTHRITIS
     Route: 058
     Dates: start: 20080218
  2. IBUPROFEN [Concomitant]
     Dosage: 160 MG EVERY 1 PRN
     Route: 048
     Dates: start: 20070801
  3. METHOTREXATE [Concomitant]
     Route: 048
     Dates: start: 20070801

REACTIONS (2)
  - CONDITION AGGRAVATED [None]
  - JUVENILE ARTHRITIS [None]
